FAERS Safety Report 4934845-6 (Version None)
Quarter: 2006Q1

REPORT INFORMATION
  Report Type: 
  Country: None (occurrence: None)
  Receive Date: 20060302
  Receipt Date: 20060216
  Transmission Date: 20060701
  Serious: Yes (Other)
  Sender: FDA-Public Use
  Company Number: FR_050907149

PATIENT
  Age: 83 Year
  Sex: Female

DRUGS (9)
  1. FORTEO [Suspect]
     Indication: OSTEOPOROSIS
     Dosage: SEE IMAGE
     Route: 058
     Dates: start: 20041230, end: 20051222
  2. FORTEO [Suspect]
     Indication: OSTEOPOROSIS
     Dosage: SEE IMAGE
     Route: 058
     Dates: start: 20060109
  3. PLAVIX [Concomitant]
  4. PREDNISONE [Concomitant]
  5. IDEOS [Concomitant]
  6. XANAX [Concomitant]
  7. OMEPRAZOLE [Concomitant]
  8. FORTEO [Concomitant]
  9. ASPIRIN [Concomitant]

REACTIONS (6)
  - ABDOMINAL PAIN UPPER [None]
  - DIVERTICULUM INTESTINAL [None]
  - HEPATIC PAIN [None]
  - INTESTINAL POLYP [None]
  - MELAENA [None]
  - NAUSEA [None]
